FAERS Safety Report 4363673-8 (Version None)
Quarter: 2004Q2

REPORT INFORMATION
  Report Type: 
  Country: None (occurrence: None)
  Receive Date: 20040517
  Receipt Date: 20040415
  Transmission Date: 20050107
  Serious: No
  Sender: FDA-Public Use
  Company Number: S04-USA-02121-01

PATIENT
  Age: 80 Year
  Sex: Male

DRUGS (4)
  1. NAMENDA [Suspect]
     Dosage: 5 MG BID PO
     Route: 048
     Dates: start: 20040414
  2. NAMENDA [Suspect]
     Dosage: 5 MG QD PO
     Route: 048
     Dates: start: 20040407, end: 20040413
  3. LIPITOR [Concomitant]
  4. ASPIRIN [Concomitant]

REACTIONS (2)
  - INFLUENZA LIKE ILLNESS [None]
  - INSOMNIA [None]
